FAERS Safety Report 10601608 (Version 4)
Quarter: 2016Q2

REPORT INFORMATION
  Report Type: Spontaneous
  Country: US (occurrence: US)
  Receive Date: 20141124
  Receipt Date: 20160406
  Transmission Date: 20160815
  Serious: Yes (Hospitalization, Other)
  Sender: FDA-Public Use
  Company Number: US-PFIZER INC-2014319384

PATIENT
  Age: 30 Year
  Sex: Female
  Weight: 60 kg

DRUGS (14)
  1. PREDNISONE. [Concomitant]
     Active Substance: PREDNISONE
     Indication: TRANSPLANT REJECTION
     Dosage: 30 MG, DAILY
     Dates: start: 20061110
  2. CYTOMEL [Concomitant]
     Active Substance: LIOTHYRONINE SODIUM
     Indication: THYROID OPERATION
     Dosage: 5 ?G, DAILY
     Route: 048
     Dates: start: 2005
  3. CALCIUM [Concomitant]
     Active Substance: CALCIUM
     Dosage: 400 MG, 2X/DAY
     Route: 048
     Dates: start: 2008
  4. COUMADIN [Concomitant]
     Active Substance: WARFARIN SODIUM
     Indication: ANTICOAGULANT THERAPY
     Dosage: 2.5 MG, 1X/DAY
     Dates: start: 1991
  5. RAPAMUNE [Suspect]
     Active Substance: SIROLIMUS
     Indication: PROPHYLAXIS AGAINST TRANSPLANT REJECTION
     Dosage: 3 MG, DAILY
     Route: 048
     Dates: start: 20061110
  6. LEXAPRO [Concomitant]
     Active Substance: ESCITALOPRAM OXALATE
     Indication: DEPRESSION
     Dosage: 10 MG, DAILY
     Route: 048
     Dates: start: 2008
  7. VITAMIN D [Concomitant]
     Active Substance: CHOLECALCIFEROL
     Dosage: 2000 IU, DAILY
     Route: 048
     Dates: start: 20061110
  8. REVATIO [Suspect]
     Active Substance: SILDENAFIL CITRATE
     Indication: REYNOLD^S SYNDROME
     Dosage: 60 MG, DAILY (20 MG + 10MG THREE TIME)
     Route: 048
     Dates: start: 2008
  9. PREDNISONE. [Concomitant]
     Active Substance: PREDNISONE
     Dosage: 5 MG, DAILY
     Route: 048
  10. SYNTHROID [Concomitant]
     Active Substance: LEVOTHYROXINE SODIUM
     Indication: PARATHYROIDECTOMY
     Dosage: .15 MG, DAILY
     Route: 048
     Dates: start: 2004
  11. PREVACID [Concomitant]
     Active Substance: LANSOPRAZOLE
     Indication: ANTACID THERAPY
     Dosage: 30 MG, DAILY
     Route: 048
     Dates: start: 20061110
  12. DETROL LA [Concomitant]
     Active Substance: TOLTERODINE TARTRATE
     Indication: BLADDER DISORDER
     Dosage: 4 MG, DAILY
     Route: 048
     Dates: start: 20061110
  13. KEPPRA [Concomitant]
     Active Substance: LEVETIRACETAM
     Indication: CONVULSION PROPHYLAXIS
     Dosage: 2000 MG, 2X/DAY
     Route: 048
     Dates: start: 2011
  14. VIMPAT [Concomitant]
     Active Substance: LACOSAMIDE
     Indication: CONVULSION PROPHYLAXIS
     Dosage: 275 MG, 2X/DAY
     Route: 048
     Dates: start: 2011

REACTIONS (3)
  - Ovarian cyst [Unknown]
  - Aura [Unknown]
  - Epilepsy [Recovered/Resolved]

NARRATIVE: CASE EVENT DATE: 20140814
